FAERS Safety Report 4320596-8 (Version None)
Quarter: 2004Q1

REPORT INFORMATION
  Report Type: 
  Country: None (occurrence: None)
  Receive Date: 20040315
  Receipt Date: 20030212
  Transmission Date: 20041129
  Serious: Yes (Hospitalization, Other)
  Sender: FDA-Public Use
  Company Number: USA030125878

PATIENT
  Age: 83 Year
  Sex: Female
  Weight: 57 kg

DRUGS (2)
  1. GEMZAR [Suspect]
     Indication: PLEURAL MESOTHELIOMA
     Dosage: 800 MG/M2/1 WEEK
     Dates: start: 20020319, end: 20020820
  2. CARBOPLATIN [Concomitant]

REACTIONS (4)
  - ANAEMIA [None]
  - BONE MARROW DEPRESSION [None]
  - DISEASE PROGRESSION [None]
  - PYREXIA [None]
